FAERS Safety Report 16312889 (Version 3)
Quarter: 2019Q2

REPORT INFORMATION
  Report Type: Report from Study
  Country: CA (occurrence: CA)
  Receive Date: 20190515
  Receipt Date: 20190612
  Transmission Date: 20190711
  Serious: Yes (Other)
  Sender: FDA-Public Use
  Company Number: CA-BIOGEN-2019BI00737685

PATIENT
  Sex: Female

DRUGS (3)
  1. TECFIDERA [Suspect]
     Active Substance: DIMETHYL FUMARATE
     Indication: MULTIPLE SCLEROSIS
     Route: 048
  2. TECFIDERA [Suspect]
     Active Substance: DIMETHYL FUMARATE
     Route: 048
     Dates: start: 20170404
  3. TECFIDERA [Suspect]
     Active Substance: DIMETHYL FUMARATE
     Route: 048

REACTIONS (6)
  - Subcutaneous abscess [Not Recovered/Not Resolved]
  - Inappropriate schedule of product administration [Unknown]
  - Breast cancer [Not Recovered/Not Resolved]
  - Post procedural complication [Not Recovered/Not Resolved]
  - Confusional state [Unknown]
  - Stress [Unknown]

NARRATIVE: CASE EVENT DATE: 2019
